FAERS Safety Report 23751479 (Version 2)
Quarter: 2024Q2

REPORT INFORMATION
  Report Type: Spontaneous
  Country: CN (occurrence: CN)
  Receive Date: 20240417
  Receipt Date: 20240420
  Transmission Date: 20240716
  Serious: Yes (Death)
  Sender: FDA-Public Use
  Company Number: CN-AMGEN-CHNSP2024072165

PATIENT
  Age: 80 Year
  Sex: Male

DRUGS (1)
  1. KYPROLIS [Suspect]
     Active Substance: CARFILZOMIB
     Indication: Plasma cell myeloma
     Dosage: UNK, FOUR INFUSIONS FOR ONE CYCLE AND THE DOSAGE ONLY HALF OF THE USUAL DUE TO THE PATIENT^S OLDER A
     Route: 065
     Dates: start: 202305

REACTIONS (2)
  - Pleural effusion [Fatal]
  - Hypophagia [Unknown]
